FAERS Safety Report 23388950 (Version 2)
Quarter: 2024Q1

REPORT INFORMATION
  Report Type: Report from Study
  Country: FR (occurrence: FR)
  Receive Date: 20240110
  Receipt Date: 20240223
  Transmission Date: 20240410
  Serious: Yes (Other)
  Sender: FDA-Public Use
  Company Number: FR-AstraZeneca-2023A058107

PATIENT
  Age: 77 Year
  Sex: Female
  Weight: 76 kg

DRUGS (12)
  1. GEMCITABINE HYDROCHLORIDE [Suspect]
     Active Substance: GEMCITABINE HYDROCHLORIDE
     Dosage: UNK
     Dates: start: 20221230
  2. GEMCITABINE HYDROCHLORIDE [Suspect]
     Active Substance: GEMCITABINE HYDROCHLORIDE
     Dosage: UNK
     Dates: start: 20230120
  3. GEMCITABINE HYDROCHLORIDE [Suspect]
     Active Substance: GEMCITABINE HYDROCHLORIDE
     Dosage: UNK
     Dates: start: 20230210
  4. GEMCITABINE HYDROCHLORIDE [Suspect]
     Active Substance: GEMCITABINE HYDROCHLORIDE
     Dosage: UNK
     Dates: start: 20230331
  5. IMFINZI [Suspect]
     Active Substance: DURVALUMAB
     Indication: Biliary tract disorder
     Dosage: 1500 MG, EVERY 3 WEEKS
     Route: 042
     Dates: start: 20221230
  6. IMFINZI [Suspect]
     Active Substance: DURVALUMAB
     Dosage: 1500 MG, EVERY 3 WEEKS
     Route: 042
     Dates: start: 20230120
  7. IMFINZI [Suspect]
     Active Substance: DURVALUMAB
     Dosage: 1500 MG, EVERY 3 WEEKS
     Route: 042
     Dates: start: 20230131, end: 20231222
  8. IMFINZI [Suspect]
     Active Substance: DURVALUMAB
     Dosage: 1500 MG, EVERY 3 WEEKS
     Route: 042
     Dates: start: 20230210
  9. CISPLATIN [Suspect]
     Active Substance: CISPLATIN
     Dosage: UNK
     Dates: start: 20221230
  10. CISPLATIN [Suspect]
     Active Substance: CISPLATIN
     Dosage: UNK
     Dates: start: 20230120
  11. CISPLATIN [Suspect]
     Active Substance: CISPLATIN
     Dosage: UNK
     Dates: start: 20230210
  12. CISPLATIN [Suspect]
     Active Substance: CISPLATIN
     Dosage: UNK
     Dates: start: 20230331, end: 20231222

REACTIONS (2)
  - Neutropenia [Recovered/Resolved]
  - Hyperthyroidism [Recovered/Resolved]

NARRATIVE: CASE EVENT DATE: 20230101
